FAERS Safety Report 13896548 (Version 1)
Quarter: 2017Q3

REPORT INFORMATION
  Report Type: Spontaneous
  Country: US (occurrence: US)
  Receive Date: 20170821
  Receipt Date: 20170821
  Transmission Date: 20171127
  Serious: No
  Sender: FDA-Public Use
  Company Number: None

PATIENT
  Age: 82 Year
  Sex: Female
  Weight: 67.5 kg

DRUGS (11)
  1. XARELTO [Suspect]
     Active Substance: RIVAROXABAN
     Indication: ATRIAL FIBRILLATION
     Dosage: ?          QUANTITY:1 TABLET(S);?
     Route: 048
  2. AREDS 2 [Concomitant]
     Active Substance: MINERALS\VITAMINS
  3. MIRALAX [Concomitant]
     Active Substance: POLYETHYLENE GLYCOL 3350
  4. GENERIC ANTIHISTAMINE [Concomitant]
  5. FISH OIL [Concomitant]
     Active Substance: FISH OIL
  6. COLACE [Concomitant]
     Active Substance: DOCUSATE SODIUM
  7. XARELTO [Concomitant]
     Active Substance: RIVAROXABAN
  8. PROBIOTIC [Concomitant]
     Active Substance: PROBIOTICS NOS
  9. DILTIAZEM. [Concomitant]
     Active Substance: DILTIAZEM
  10. ASTAPRO [Concomitant]
  11. CULTUREL [Concomitant]

REACTIONS (1)
  - Alopecia [None]

NARRATIVE: CASE EVENT DATE: 20170630
